FAERS Safety Report 10074580 (Version 1)
Quarter: 2014Q2

REPORT INFORMATION
  Report Type: Spontaneous
  Country: US (occurrence: US)
  Receive Date: 20140411
  Receipt Date: 20140411
  Transmission Date: 20141212
  Serious: No
  Sender: FDA-Public Use
  Company Number: US-SA-2014SA030436

PATIENT
  Age: 54 Year
  Sex: Female

DRUGS (2)
  1. ALLEGRA D [Suspect]
     Indication: SINUS CONGESTION
     Dosage: DOSAGE-60 MG/ 120 MG
     Route: 048
  2. VICTOZA [Concomitant]

REACTIONS (4)
  - Rash [Not Recovered/Not Resolved]
  - Pruritus [Not Recovered/Not Resolved]
  - Erythema [Not Recovered/Not Resolved]
  - Drug dose omission [Unknown]
